FAERS Safety Report 22766644 (Version 5)
Quarter: 2024Q3

REPORT INFORMATION
  Report Type: Report from Study
  Country: US (occurrence: US)
  Receive Date: 20230731
  Receipt Date: 20240809
  Transmission Date: 20241016
  Serious: Yes (Other)
  Sender: pharmaAND
  Company Number: US-PHARMAAND-2023PHR00084

PATIENT
  Sex: Female

DRUGS (1)
  1. RUBRACA [Suspect]
     Active Substance: RUCAPARIB CAMSYLATE
     Indication: Ovarian cancer
     Dosage: 600 MG, 2X/DAY
     Route: 048
     Dates: start: 202305

REACTIONS (1)
  - Neuropathy peripheral [Unknown]
